FAERS Safety Report 6157211-7 (Version None)
Quarter: 2009Q2

REPORT INFORMATION
  Report Type: 
  Country: None (occurrence: None)
  Receive Date: 20090416
  Receipt Date: 20090211
  Transmission Date: 20091009
  Serious: Yes (Hospitalization)
  Sender: FDA-Public Use
  Company Number: IN-MERCK-0904USA01701

PATIENT
  Age: 50 Year
  Sex: Female
  Weight: 70 kg

DRUGS (4)
  1. JANUVIA [Suspect]
     Indication: TYPE 2 DIABETES MELLITUS
     Route: 048
     Dates: start: 20090101
  2. AMARYL [Concomitant]
     Route: 065
  3. CYCLOPHOSPHAMIDE AND DOXORUBICIN [Concomitant]
     Route: 065
  4. ATORVASTATIN [Concomitant]
     Route: 065

REACTIONS (6)
  - ADVERSE EVENT [None]
  - INAPPROPRIATE SCHEDULE OF DRUG ADMINISTRATION [None]
  - LIP DISCOLOURATION [None]
  - LIP SWELLING [None]
  - PIGMENTATION DISORDER [None]
  - SKIN DISCOLOURATION [None]
